FAERS Safety Report 8986968 (Version 8)
Quarter: 2013Q3

REPORT INFORMATION
  Report Type: Spontaneous
  Country: US (occurrence: US)
  Receive Date: 20121227
  Receipt Date: 20130711
  Transmission Date: 20140515
  Serious: Yes (Hospitalization)
  Sender: FDA-Public Use
  Company Number: US-BIOGENIDEC-2012BI063724

PATIENT
  Age: 57 Year
  Sex: Male

DRUGS (3)
  1. TYSABRI [Suspect]
     Indication: MULTIPLE SCLEROSIS
     Route: 042
     Dates: start: 20081216, end: 201211
  2. BACLOFEN PUMP [Concomitant]
     Indication: MUSCLE SPASTICITY
  3. MORPHINE PUMP [Concomitant]
     Indication: PAIN IN EXTREMITY

REACTIONS (12)
  - Multiple sclerosis relapse [Recovered/Resolved]
  - Pneumonia [Recovered/Resolved]
  - Urinary tract infection [Recovered/Resolved]
  - Device breakage [Unknown]
  - Hip fracture [Not Recovered/Not Resolved]
  - Parosmia [Recovered/Resolved]
  - Dysgeusia [Recovered/Resolved]
  - Rhinorrhoea [Recovered/Resolved]
  - Pyrexia [Recovered/Resolved]
  - Arthralgia [Unknown]
  - Muscle spasticity [Recovered/Resolved]
  - Device failure [Recovered/Resolved]
